FAERS Safety Report 12822668 (Version 5)
Quarter: 2019Q3

REPORT INFORMATION
  Report Type: Spontaneous
  Country: US (occurrence: US)
  Receive Date: 20161007
  Receipt Date: 20190912
  Transmission Date: 20191004
  Serious: Yes (Other)
  Sender: FDA-Public Use
  Company Number: US-PFIZER INC-2016465812

PATIENT
  Age: 73 Year
  Sex: Male

DRUGS (1)
  1. LYRICA [Suspect]
     Active Substance: PREGABALIN
     Dosage: 75 MG, DAILY (IN THE MORNING)

REACTIONS (6)
  - Tremor [Unknown]
  - Suffocation feeling [Unknown]
  - Dysgraphia [Unknown]
  - Paraesthesia [Unknown]
  - Drug ineffective [Unknown]
  - Parkinson^s disease [Unknown]
